FAERS Safety Report 5495726-5 (Version None)
Quarter: 2007Q4

REPORT INFORMATION
  Report Type: 
  Country: None (occurrence: None)
  Receive Date: 20071025
  Receipt Date: 20061010
  Transmission Date: 20080405
  Serious: No
  Sender: FDA-Public Use
  Company Number: A0623068A

PATIENT
  Age: 65 Year

DRUGS (2)
  1. ADVAIR DISKUS 100/50 [Suspect]
     Indication: BULLOUS LUNG DISEASE
     Route: 055
     Dates: start: 20050101
  2. NEXIUM [Concomitant]

REACTIONS (2)
  - COUGH [None]
  - HYPERSENSITIVITY [None]
